FAERS Safety Report 7673364-3 (Version None)
Quarter: 2011Q3

REPORT INFORMATION
  Report Type: 
  Country: None (occurrence: None)
  Receive Date: 20110810
  Receipt Date: 20110801
  Transmission Date: 20111222
  Serious: Yes (Hospitalization)
  Sender: FDA-Public Use
  Company Number: US-JNJFOC-20081005335

PATIENT
  Sex: Female
  Weight: 37.7 kg

DRUGS (3)
  1. CIPROFLOXACIN HCL [Concomitant]
  2. REMICADE [Suspect]
     Dosage: INITIAL INFUSION
     Route: 042
     Dates: start: 20080716
  3. REMICADE [Suspect]
     Indication: COLITIS ULCERATIVE
     Dosage: TOTAL 3 DOSES
     Route: 042
     Dates: start: 20080821

REACTIONS (2)
  - COLITIS ULCERATIVE [None]
  - DEHYDRATION [None]
